FAERS Safety Report 14032746 (Version 1)
Quarter: 2017Q4

REPORT INFORMATION
  Report Type: Report from Study
  Country: None (occurrence: US)
  Receive Date: 20171003
  Receipt Date: 20171003
  Transmission Date: 20180321
  Serious: Yes (Other)
  Sender: FDA-Public Use
  Company Number: US-ABBVIE-17K-163-1921367-00

PATIENT
  Sex: Male

DRUGS (3)
  1. HUMIRA [Suspect]
     Active Substance: ADALIMUMAB
     Indication: PSORIASIS
     Dosage: DAY 1
     Route: 058
     Dates: start: 20170322, end: 20170322
  2. HUMIRA [Suspect]
     Active Substance: ADALIMUMAB
     Route: 058
     Dates: start: 20170422
  3. HUMIRA [Suspect]
     Active Substance: ADALIMUMAB
     Dosage: DAY 8
     Route: 058
     Dates: start: 20170329, end: 20170329

REACTIONS (7)
  - Pain of skin [Recovering/Resolving]
  - Pruritus [Recovering/Resolving]
  - Psoriasis [Unknown]
  - Post procedural complication [Unknown]
  - Skin irritation [Recovering/Resolving]
  - Decubitus ulcer [Unknown]
  - Limb operation [Unknown]

NARRATIVE: CASE EVENT DATE: 2017
